FAERS Safety Report 10128694 (Version 2)
Quarter: 2014Q2

REPORT INFORMATION
  Report Type: Spontaneous
  Country: PL (occurrence: None)
  Receive Date: 20140423
  Receipt Date: 20140425
  Transmission Date: 20141212
  Serious: Yes (Life-Threatening)
  Sender: FDA-Public Use
  Company Number: 2299700

PATIENT
  Age: 63 Year
  Sex: Female

DRUGS (2)
  1. PACLITAXEL [Suspect]
     Indication: OVARIAN CANCER
     Dosage: 289.77 MG ILLIGRAM(S), UNKNOWN, INTRAVENOUS
     Route: 041
     Dates: start: 20131203, end: 20131203
  2. CARBOPLATIN [Concomitant]

REACTIONS (4)
  - Dyspnoea [None]
  - Blood pressure increased [None]
  - Erythema [None]
  - Infusion related reaction [None]
